FAERS Safety Report 7760074-7 (Version None)
Quarter: 2011Q3

REPORT INFORMATION
  Report Type: 
  Country: None (occurrence: None)
  Receive Date: 20110919
  Receipt Date: 20110912
  Transmission Date: 20111222
  Serious: Yes (Death, Hospitalization)
  Sender: FDA-Public Use
  Company Number: BR-US-EMD SERONO, INC.-7050733

PATIENT
  Sex: Male

DRUGS (4)
  1. BACLOFEN [Concomitant]
  2. DIAZEPAM [Concomitant]
  3. REBIF [Suspect]
     Indication: RELAPSING-REMITTING MULTIPLE SCLEROSIS
     Dates: start: 20080821
  4. TYLENOL-500 [Concomitant]

REACTIONS (5)
  - URINARY TRACT INFECTION [None]
  - DIABETIC COMPLICATION [None]
  - ARRHYTHMIA [None]
  - APNOEA [None]
  - DYSENTERY [None]
